FAERS Safety Report 5262681-2 (Version None)
Quarter: 2007Q1

REPORT INFORMATION
  Report Type: 
  Country: None (occurrence: None)
  Receive Date: 20070307
  Receipt Date: 20070223
  Transmission Date: 20070707
  Serious: Yes (Life-Threatening, Hospitalization)
  Sender: FDA-Public Use
  Company Number: 153320ISR

PATIENT
  Age: 46 Year
  Sex: Male

DRUGS (2)
  1. QUININE [Suspect]
     Indication: MUSCLE SPASMS
     Dosage: 299 MG (200 MG, 1 IN 1 D) ORAL
     Route: 048
     Dates: start: 20070105, end: 20070106
  2. QUININE [Suspect]
     Indication: PAIN
     Dosage: 299 MG (200 MG, 1 IN 1 D) ORAL
     Route: 048
     Dates: start: 20070105, end: 20070106

REACTIONS (2)
  - AUTOIMMUNE THROMBOCYTOPENIA [None]
  - NEUTROPENIA [None]
